FAERS Safety Report 6092977-6 (Version None)
Quarter: 2009Q1

REPORT INFORMATION
  Report Type: 
  Country: None (occurrence: None)
  Receive Date: 20090224
  Receipt Date: 20090217
  Transmission Date: 20090719
  Serious: No
  Sender: FDA-Public Use
  Company Number: APP200900087

PATIENT
  Age: 41 Year
  Sex: Female

DRUGS (5)
  1. HEPARIN SODIUM INJECTION [Suspect]
     Indication: PROPHYLAXIS
     Dosage: 1 ML, 2 IN 1 D, SUBCUTANEOUS
     Route: 058
     Dates: start: 20080801
  2. PRENATAL VITAMINS (PRENATAL VITAMINS /01549301/) [Concomitant]
  3. TUMS WITH CALCIUM (CALCIUM CARBONATE) [Concomitant]
  4. ASPIRIN [Concomitant]
  5. PROGEST-VAG IHP (PROGESTERONE) [Concomitant]

REACTIONS (7)
  - BLISTER [None]
  - DRUG EXPOSURE DURING PREGNANCY [None]
  - ERYTHEMA [None]
  - INJECTION SITE URTICARIA [None]
  - PREGNANCY [None]
  - PRURITUS [None]
  - RASH GENERALISED [None]
